FAERS Safety Report 25785469 (Version 1)
Quarter: 2025Q3

REPORT INFORMATION
  Report Type: Spontaneous
  Country: US (occurrence: US)
  Receive Date: 20250910
  Receipt Date: 20250910
  Transmission Date: 20251021
  Serious: Yes (Other)
  Sender: MYLAN
  Company Number: US-MYLANLABS-2025M1076090

PATIENT
  Age: 60 Year
  Sex: Male

DRUGS (12)
  1. DAPTOMYCIN [Suspect]
     Active Substance: DAPTOMYCIN
     Indication: Osteomyelitis
  2. DAPTOMYCIN [Suspect]
     Active Substance: DAPTOMYCIN
     Indication: Arthritis infective
  3. DAPTOMYCIN [Suspect]
     Active Substance: DAPTOMYCIN
     Indication: Enterococcal infection
  4. DAPTOMYCIN [Suspect]
     Active Substance: DAPTOMYCIN
     Indication: Osteomyelitis
  5. CEFAZOLIN [Suspect]
     Active Substance: CEFAZOLIN
     Indication: Osteomyelitis
  6. CEFAZOLIN [Suspect]
     Active Substance: CEFAZOLIN
     Indication: Enterococcal infection
  7. CEFAZOLIN [Suspect]
     Active Substance: CEFAZOLIN
     Indication: Osteomyelitis
  8. CEFAZOLIN [Suspect]
     Active Substance: CEFAZOLIN
     Indication: Arthritis infective
  9. ORITAVANCIN [Suspect]
     Active Substance: ORITAVANCIN
     Indication: Osteomyelitis
     Dosage: 1200 MILLIGRAM, QW, TWO DOSES
  10. ORITAVANCIN [Suspect]
     Active Substance: ORITAVANCIN
     Indication: Enterococcal infection
  11. ORITAVANCIN [Suspect]
     Active Substance: ORITAVANCIN
     Indication: Osteomyelitis
  12. ORITAVANCIN [Suspect]
     Active Substance: ORITAVANCIN
     Indication: Arthritis infective

REACTIONS (1)
  - Drug ineffective [Unknown]
